FAERS Safety Report 6246963-3 (Version None)
Quarter: 2009Q2

REPORT INFORMATION
  Report Type: 
  Country: None (occurrence: None)
  Receive Date: 20090624
  Receipt Date: 20090624
  Transmission Date: 20091009
  Serious: Yes (Hospitalization)
  Sender: FDA-Public Use
  Company Number: None

PATIENT
  Age: 50 Year
  Sex: Male
  Weight: 125.4 kg

DRUGS (1)
  1. WARFARIN [Suspect]
     Indication: DEEP VEIN THROMBOSIS
     Dosage: 4 MG EVERY DAY PO
     Route: 048
     Dates: start: 20090606, end: 20090606

REACTIONS (3)
  - HAEMATEMESIS [None]
  - HAEMATURIA [None]
  - INTERNATIONAL NORMALISED RATIO ABNORMAL [None]
